FAERS Safety Report 21765290 (Version 1)
Quarter: 2022Q4

REPORT INFORMATION
  Report Type: Spontaneous
  Country: US (occurrence: None)
  Receive Date: 20221222
  Receipt Date: 20221222
  Transmission Date: 20230113
  Serious: No
  Sender: FDA-Public Use
  Company Number: US-SUPERNUS Pharmaceuticals, Inc.-SUP202201-000004

PATIENT
  Age: 19 Year
  Sex: Male

DRUGS (2)
  1. TROKENDI XR [Suspect]
     Active Substance: TOPIRAMATE
     Indication: Migraine
     Dosage: 50MG
  2. TROKENDI XR [Suspect]
     Active Substance: TOPIRAMATE
     Dosage: 100MG

REACTIONS (1)
  - Drug ineffective [Unknown]
